FAERS Safety Report 12494591 (Version 1)
Quarter: 2016Q2

REPORT INFORMATION
  Report Type: Spontaneous
  Country: US (occurrence: US)
  Receive Date: 20160624
  Receipt Date: 20160624
  Transmission Date: 20160815
  Serious: No
  Sender: FDA-Public Use
  Company Number: US-ASTRAZENECA-2016SE42444

PATIENT
  Sex: Female
  Weight: 79.4 kg

DRUGS (16)
  1. METFORMIN [Concomitant]
     Active Substance: METFORMIN HYDROCHLORIDE
     Indication: TYPE 2 DIABETES MELLITUS
     Route: 048
     Dates: start: 2008
  2. GENUVIA [Concomitant]
     Indication: TYPE 2 DIABETES MELLITUS
     Route: 048
  3. SUBSTITUTED FOR ZOCOR [Concomitant]
     Dates: start: 1999
  4. VITAMIN B12 [Concomitant]
     Active Substance: CYANOCOBALAMIN
     Dosage: ONE TABLET A DAY
  5. VITAMINS [Concomitant]
     Active Substance: VITAMINS
     Indication: ROUTINE HEALTH MAINTENANCE
     Dosage: ONE TABLET EVERY DAY
     Dates: start: 2013
  6. TOPROL XL [Suspect]
     Active Substance: METOPROLOL SUCCINATE
     Indication: MIGRAINE
     Dosage: CUT THE TABLETS IN HALF
     Route: 048
  7. ACCURETIC [Concomitant]
     Active Substance: HYDROCHLOROTHIAZIDE\QUINAPRIL HYDROCHLORIDE
     Indication: HYPERTENSION
     Dosage: 20-12.5MG, ONCE A DAY
     Route: 048
     Dates: start: 2002
  8. VYTORN [Concomitant]
     Indication: BLOOD CHOLESTEROL ABNORMAL
     Dosage: 10-80 MG, ONE A DAY
     Route: 048
     Dates: start: 1999
  9. ALEVE [Concomitant]
     Active Substance: NAPROXEN SODIUM
     Indication: ARTHRITIS
     Route: 048
     Dates: start: 2014
  10. BLLOD PRESSURE PILL [Concomitant]
  11. IRON PILL [Concomitant]
     Active Substance: IRON
     Dosage: TWICE A DAY
  12. VYTORN [Concomitant]
     Indication: CARDIAC DISORDER
     Dosage: 10-80 MG, ONE A DAY
     Route: 048
     Dates: start: 1999
  13. TOPROL XL [Suspect]
     Active Substance: METOPROLOL SUCCINATE
     Indication: MIGRAINE
     Route: 048
     Dates: start: 2014
  14. AMLODIPINE BESYLATE. [Concomitant]
     Active Substance: AMLODIPINE BESYLATE
     Indication: BLOOD PRESSURE MEASUREMENT
     Route: 048
  15. VITAMIN B6 [Concomitant]
     Active Substance: PYRIDOXINE HYDROCHLORIDE
     Dosage: ONE TABLET A DAY
  16. CALTRATE [Concomitant]
     Active Substance: CALCIUM CARBONATE
     Dosage: ONE TABLET A DAY

REACTIONS (4)
  - Feeling abnormal [Recovered/Resolved]
  - Drug dose omission [Unknown]
  - Off label use [Unknown]
  - Product use issue [Unknown]
